FAERS Safety Report 10443105 (Version 5)
Quarter: 2014Q4

REPORT INFORMATION
  Report Type: Spontaneous
  Country: US (occurrence: US)
  Receive Date: 20140909
  Receipt Date: 20141024
  Transmission Date: 20150528
  Serious: Yes (Hospitalization, Other)
  Sender: FDA-Public Use
  Company Number: US-AMGEN-USASP2014068048

PATIENT
  Age: 34 Year
  Sex: Male
  Weight: 75.28 kg

DRUGS (13)
  1. CITALOPRAM [Concomitant]
     Active Substance: CITALOPRAM HYDROBROMIDE
     Dosage: 40 MG, ONCE A DAY
     Route: 048
  2. MELATONIN W/B6 [Concomitant]
     Dosage: 5 MG, EXTENDED RELEASE 2 TABLETS ONCE A DAY AT BED TIME
  3. METHOTREXATE [Concomitant]
     Active Substance: METHOTREXATE
     Dosage: 25 MG, QWK
  4. CLONAZEPAM. [Concomitant]
     Active Substance: CLONAZEPAM
     Dosage: 2 MG, BID
     Dates: start: 201407
  5. TRAMADOL [Concomitant]
     Active Substance: TRAMADOL
     Dosage: 50 MG, (1-2 TABS) TID
  6. GEODON [Concomitant]
     Active Substance: ZIPRASIDONE HYDROCHLORIDE\ZIPRASIDONE MESYLATE
     Dosage: 80 MG, BID
     Route: 048
  7. ELAVIL [Concomitant]
     Active Substance: AMITRIPTYLINE HYDROCHLORIDE
     Dosage: 150 MG, QHS
     Route: 048
  8. LISINOPRIL. [Concomitant]
     Active Substance: LISINOPRIL
     Dosage: 20 MG, 1 TABLET ONCE A DAY
     Route: 048
  9. ENBREL [Suspect]
     Active Substance: ETANERCEPT
     Indication: PSORIATIC ARTHROPATHY
     Dosage: 50 MG, QWK
     Route: 058
     Dates: start: 20120301
  10. CLONAZEPAM. [Concomitant]
     Active Substance: CLONAZEPAM
     Dosage: 2 MG, TID
  11. VITAMINS WITH MINERALS [Concomitant]
     Active Substance: MINERALS\VITAMINS
     Dosage: 1 DF, QD
     Route: 048
  12. MELOXICAM. [Concomitant]
     Active Substance: MELOXICAM
     Dosage: 15 MG, 1 TABLET ONCE PER DAY
  13. LEVITRA [Concomitant]
     Active Substance: VARDENAFIL HYDROCHLORIDE TRIHYDRATE
     Dosage: 20 MG 1 TABLET, ONCE A DAY
     Route: 048

REACTIONS (17)
  - Road traffic accident [Recovered/Resolved]
  - Fatigue [Unknown]
  - Peripheral swelling [Unknown]
  - Syncope [Unknown]
  - Arthralgia [Unknown]
  - Neuropathy peripheral [Unknown]
  - Pain in extremity [Unknown]
  - Dyspnoea [Unknown]
  - Asthenia [Unknown]
  - Spondylitis [Unknown]
  - Hypertension [Unknown]
  - Acute kidney injury [Unknown]
  - Abasia [Unknown]
  - Migraine [Unknown]
  - Pain [Unknown]
  - Dyspepsia [Unknown]
  - Psoriasis [Not Recovered/Not Resolved]

NARRATIVE: CASE EVENT DATE: 2013
